FAERS Safety Report 4394524-3 (Version None)
Quarter: 2004Q3

REPORT INFORMATION
  Report Type: 
  Country: None (occurrence: None)
  Receive Date: 20040707
  Receipt Date: 20040625
  Transmission Date: 20050211
  Serious: Yes (Hospitalization)
  Sender: FDA-Public Use
  Company Number: 03P-163-0235668-00

PATIENT
  Age: 63 Year
  Sex: Female
  Weight: 58.9676 kg

DRUGS (10)
  1. HUMIRA [Suspect]
     Indication: RHEUMATOID ARTHRITIS
     Dosage: SEE IMAGE
     Route: 058
     Dates: start: 20031026, end: 20010304
  2. HUMIRA [Suspect]
     Indication: RHEUMATOID ARTHRITIS
     Dosage: SEE IMAGE
     Route: 058
     Dates: start: 20030101, end: 20030603
  3. HUMIRA [Suspect]
     Indication: RHEUMATOID ARTHRITIS
     Dosage: SEE IMAGE
     Route: 058
     Dates: start: 20030101, end: 20031025
  4. HUMIRA [Suspect]
     Indication: RHEUMATOID ARTHRITIS
     Dosage: SEE IMAGE
     Route: 058
     Dates: start: 20040304
  5. PROPACET 100 [Concomitant]
  6. LOSARTAN POTASSIUM [Concomitant]
  7. ATENOLOL [Concomitant]
  8. POTASSIUM [Concomitant]
  9. GYRPEC [Concomitant]
  10. AMLODIPINE BESYLATE [Concomitant]

REACTIONS (14)
  - ARTHRALGIA [None]
  - COUGH [None]
  - CYSTITIS [None]
  - DRUG INEFFECTIVE [None]
  - FULL BLOOD COUNT DECREASED [None]
  - FUNGAL INFECTION [None]
  - HYPERHIDROSIS [None]
  - NIGHT SWEATS [None]
  - OEDEMA PERIPHERAL [None]
  - PRURITUS [None]
  - RALES [None]
  - RASH ERYTHEMATOUS [None]
  - RASH PRURITIC [None]
  - WEIGHT DECREASED [None]
